FAERS Safety Report 22009606 (Version 1)
Quarter: 2023Q1

REPORT INFORMATION
  Report Type: Spontaneous
  Country: JP (occurrence: JP)
  Receive Date: 20230220
  Receipt Date: 20230220
  Transmission Date: 20230418
  Serious: Yes (Other)
  Sender: FDA-Public Use
  Company Number: JP-NBI-J202213865BIPI

PATIENT
  Age: 71 Year
  Sex: Male

DRUGS (2)
  1. OFEV [Suspect]
     Active Substance: NINTEDANIB
     Indication: Idiopathic pulmonary fibrosis
     Route: 048
     Dates: end: 20220730
  2. OFEV [Suspect]
     Active Substance: NINTEDANIB
     Route: 048
     Dates: start: 20220806

REACTIONS (20)
  - Idiopathic pulmonary fibrosis [Not Recovered/Not Resolved]
  - Herpes zoster [Not Recovered/Not Resolved]
  - Diarrhoea [Recovered/Resolved]
  - KL-6 increased [Not Recovered/Not Resolved]
  - KL-6 increased [Not Recovered/Not Resolved]
  - Dyspnoea exertional [Recovered/Resolved]
  - Cough [Not Recovered/Not Resolved]
  - Oxygen saturation decreased [Recovered/Resolved]
  - Dysphonia [Not Recovered/Not Resolved]
  - Rhinorrhoea [Not Recovered/Not Resolved]
  - Nasal congestion [Not Recovered/Not Resolved]
  - Motor dysfunction [Unknown]
  - Post herpetic neuralgia [Not Recovered/Not Resolved]
  - Dyspnoea [Not Recovered/Not Resolved]
  - Oxygen saturation decreased [Not Recovered/Not Resolved]
  - Tachycardia [Not Recovered/Not Resolved]
  - Hot flush [Not Recovered/Not Resolved]
  - Inflammatory marker increased [Not Recovered/Not Resolved]
  - Inflammation [Not Recovered/Not Resolved]
  - Bedridden [Not Recovered/Not Resolved]

NARRATIVE: CASE EVENT DATE: 20210101
